FAERS Safety Report 6546011-1 (Version None)
Quarter: 2010Q1

REPORT INFORMATION
  Report Type: 
  Country: None (occurrence: None)
  Receive Date: 20100121
  Receipt Date: 20100121
  Transmission Date: 20100710
  Serious: Yes (Death, Hospitalization)
  Sender: FDA-Public Use
  Company Number: None

PATIENT
  Age: 59 Year
  Sex: Male
  Weight: 65.5 kg

DRUGS (1)
  1. BENDAMUSTINE 204 MG [Suspect]
     Indication: SMALL CELL LUNG CANCER STAGE UNSPECIFIED
     Dosage: 204 MG D1-2 Q21D IV
     Route: 042
     Dates: start: 20090922, end: 20091208

REACTIONS (5)
  - ASTHENIA [None]
  - DISEASE PROGRESSION [None]
  - FLUID INTAKE REDUCED [None]
  - HAEMOGLOBIN DECREASED [None]
  - HYPOPHAGIA [None]
